FAERS Safety Report 4279562-3 (Version None)
Quarter: 2004Q1

REPORT INFORMATION
  Report Type: 
  Country: None (occurrence: None)
  Receive Date: 20040126
  Receipt Date: 20040126
  Transmission Date: 20041129
  Serious: No
  Sender: FDA-Public Use
  Company Number: None

PATIENT
  Sex: Female
  Weight: 101.1521 kg

DRUGS (1)
  1. TOPAMAX [Suspect]
     Indication: EPILEPSY
     Dosage: 700 BID
     Dates: start: 20010901

REACTIONS (2)
  - BLOOD BICARBONATE DECREASED [None]
  - RENAL TUBULAR ACIDOSIS [None]
